FAERS Safety Report 4518000-X (Version None)
Quarter: 2004Q4

REPORT INFORMATION
  Report Type: 
  Country: None (occurrence: None)
  Receive Date: 20041203
  Receipt Date: 20041124
  Transmission Date: 20050328
  Serious: Yes (Life-Threatening, Hospitalization)
  Sender: FDA-Public Use
  Company Number: FR-BRISTOL-MYERS SQUIBB COMPANY-12775003

PATIENT
  Age: 33 Year
  Sex: Male
  Weight: 58 kg

DRUGS (13)
  1. VIDEX [Suspect]
     Indication: HIV INFECTION
     Route: 048
     Dates: start: 20021102, end: 20030111
  2. SUSTIVA [Concomitant]
  3. CRIXIVAN [Concomitant]
  4. NORVIR [Concomitant]
  5. KALETRA [Concomitant]
  6. VFEND [Concomitant]
  7. RIVOTRIL [Concomitant]
  8. TIORFAN [Concomitant]
  9. IMODIUM [Concomitant]
  10. MS CONTIN [Concomitant]
  11. MYCOSTATIN [Concomitant]
  12. ZECLAR [Concomitant]
  13. MYAMBUTOL [Concomitant]

REACTIONS (1)
  - PANCREATITIS [None]
